FAERS Safety Report 16404544 (Version 1)
Quarter: 2019Q3

REPORT INFORMATION
  Report Type: Spontaneous
  Country: US (occurrence: US)
  Receive Date: 20190606
  Receipt Date: 20190606
  Transmission Date: 20191004
  Serious: Yes (Hospitalization)
  Sender: FDA-Public Use
  Company Number: None

PATIENT
  Age: 52 Year
  Sex: Female
  Weight: 146.51 kg

DRUGS (1)
  1. ERTUGLIFLOZIN [Concomitant]
     Active Substance: ERTUGLIFLOZIN
     Indication: TYPE 2 DIABETES MELLITUS
     Route: 048
     Dates: start: 20190117, end: 20190326

REACTIONS (3)
  - Fournier^s gangrene [None]
  - Cellulitis [None]
  - Abscess limb [None]

NARRATIVE: CASE EVENT DATE: 20190325
